FAERS Safety Report 9796265 (Version 2)
Quarter: 2014Q1

REPORT INFORMATION
  Report Type: Spontaneous
  Country: TN (occurrence: TN)
  Receive Date: 20140103
  Receipt Date: 20140103
  Transmission Date: 20141002
  Serious: Yes (Other)
  Sender: FDA-Public Use
  Company Number: TN-WATSON-2009A-06778

PATIENT
  Age: 24 Year
  Sex: Male

DRUGS (1)
  1. DOXYCYCLINE (UNKNOWN) [Suspect]
     Indication: COUGH
     Dosage: 100 MG, DAILY
     Route: 065
     Dates: start: 20051002, end: 200511

REACTIONS (2)
  - Benign intracranial hypertension [Recovered/Resolved]
  - Intentional drug misuse [Unknown]
